FAERS Safety Report 16430000 (Version 1)
Quarter: 2019Q2

REPORT INFORMATION
  Report Type: Spontaneous
  Country: US (occurrence: US)
  Receive Date: 20190614
  Receipt Date: 20190614
  Transmission Date: 20190711
  Serious: No
  Sender: FDA-Public Use
  Company Number: US-DRREDDYS-USA/USA/19/0110871

PATIENT
  Sex: Male

DRUGS (2)
  1. ZOLPIDEM [Suspect]
     Active Substance: ZOLPIDEM\ZOLPIDEM TARTRATE
     Indication: RAPID EYE MOVEMENT SLEEP BEHAVIOUR DISORDER
     Route: 065
  2. TRAZODONE [Concomitant]
     Active Substance: TRAZODONE HYDROCHLORIDE
     Indication: RAPID EYE MOVEMENT SLEEP BEHAVIOUR DISORDER

REACTIONS (2)
  - Condition aggravated [Recovered/Resolved]
  - Rapid eye movement sleep behaviour disorder [Recovered/Resolved]
